FAERS Safety Report 7299731-8 (Version None)
Quarter: 2011Q1

REPORT INFORMATION
  Report Type: 
  Country: None (occurrence: None)
  Receive Date: 20110217
  Receipt Date: 20101229
  Transmission Date: 20110831
  Serious: Yes (Other)
  Sender: FDA-Public Use
  Company Number: US-BAYER-201033402NA

PATIENT
  Sex: Female
  Weight: 58.957 kg

DRUGS (5)
  1. YASMIN [Suspect]
     Indication: ACNE
     Dosage: UNK
     Route: 048
     Dates: start: 20021222, end: 20030201
  2. YAZ [Suspect]
     Indication: ACNE
     Dosage: UNK
     Dates: start: 20090801, end: 20091001
  3. YASMIN [Suspect]
     Dosage: UNK
     Dates: start: 20071101, end: 20080101
  4. YASMIN [Suspect]
     Dosage: UNK
     Dates: start: 20060501, end: 20070201
  5. YASMIN [Suspect]
     Dosage: UNK
     Dates: start: 20081001, end: 20090101

REACTIONS (6)
  - CHOLECYSTITIS [None]
  - BILIARY COLIC [None]
  - ABDOMINAL PAIN [None]
  - MENTAL DISORDER [None]
  - VOMITING [None]
  - CHOLELITHIASIS [None]
